FAERS Safety Report 6275106-5 (Version None)
Quarter: 2009Q3

REPORT INFORMATION
  Report Type: 
  Country: None (occurrence: None)
  Receive Date: 20090721
  Receipt Date: 20090709
  Transmission Date: 20100115
  Serious: Yes (Other)
  Sender: FDA-Public Use
  Company Number: PHEH2008US07466

PATIENT
  Sex: Female

DRUGS (5)
  1. ZOMETA [Suspect]
     Dosage: 1 MG, UNK
  2. THALIDOMIDE [Concomitant]
  3. DEXAMETHASONE [Concomitant]
  4. VELCADE [Concomitant]
  5. ANZEMET [Concomitant]

REACTIONS (8)
  - ANXIETY [None]
  - GENERAL PHYSICAL HEALTH DETERIORATION [None]
  - LYMPHADENOPATHY [None]
  - MUSCULOSKELETAL DISCOMFORT [None]
  - OSTEONECROSIS [None]
  - PAIN [None]
  - PHARYNGITIS [None]
  - VOMITING [None]
